FAERS Safety Report 14537435 (Version 1)
Quarter: 2018Q1

REPORT INFORMATION
  Report Type: Report from Study
  Country: US (occurrence: US)
  Receive Date: 20180215
  Receipt Date: 20180215
  Transmission Date: 20180509
  Serious: Yes (Hospitalization)
  Sender: FDA-Public Use
  Company Number: US-ACTELION-A-US2017-163961

PATIENT
  Age: 19 Year
  Sex: Male
  Weight: 51.7 kg

DRUGS (3)
  1. REVATIO [Concomitant]
     Active Substance: SILDENAFIL CITRATE
  2. UPTRAVI [Suspect]
     Active Substance: SELEXIPAG
     Indication: PULMONARY ARTERIAL HYPERTENSION
     Dosage: 600 MCG, BID
     Route: 048
  3. LETAIRIS [Concomitant]
     Active Substance: AMBRISENTAN

REACTIONS (7)
  - Pain in extremity [Unknown]
  - Pleural effusion [Unknown]
  - Diarrhoea [Unknown]
  - Renal disorder [Unknown]
  - Nausea [Unknown]
  - Feeling cold [Unknown]
  - Pain [Unknown]
